FAERS Safety Report 10007246 (Version 2)
Quarter: 2014Q2

REPORT INFORMATION
  Report Type: Spontaneous
  Country: US (occurrence: US)
  Receive Date: 20140313
  Receipt Date: 20140417
  Transmission Date: 20141212
  Serious: No
  Sender: FDA-Public Use
  Company Number: US-B.I. PHARMACEUTICALS,INC./RIDGEFIELD-2014-BI-09930BP

PATIENT
  Age: 77 Year
  Sex: Male
  Weight: 81 kg

DRUGS (10)
  1. FLOMAX CAPSULES [Suspect]
     Indication: BLADDER DISORDER
     Route: 048
     Dates: start: 201305, end: 201305
  2. ADVAIR [Concomitant]
     Indication: EMPHYSEMA
     Dosage: FORMULATION:INHALATION AEROSOL
     Route: 055
  3. AMLODIPINE [Concomitant]
     Indication: HYPERTENSION
     Dosage: 5 MG
     Route: 048
  4. LOVASTATIN [Concomitant]
     Indication: BLOOD CHOLESTEROL INCREASED
     Dosage: 40 MG
     Route: 048
  5. FINASTERIDE [Concomitant]
     Route: 065
  6. METOPROLOL [Concomitant]
     Route: 065
  7. SPIRIVA [Concomitant]
     Route: 065
  8. ASPIRIN [Concomitant]
     Route: 065
  9. ALBUTEROL [Concomitant]
     Route: 065
  10. QUINAPRIL [Concomitant]
     Route: 065

REACTIONS (3)
  - Disorientation [Recovered/Resolved]
  - Dizziness [Recovered/Resolved]
  - Hypersensitivity [Unknown]
